FAERS Safety Report 9000477 (Version 2)
Quarter: 2013Q1

REPORT INFORMATION
  Report Type: Spontaneous
  Country: US (occurrence: None)
  Receive Date: 20121221
  Receipt Date: 20130103
  Transmission Date: 20140127
  Serious: Yes (Other)
  Sender: FDA-Public Use
  Company Number: USA/USA/12/0027146

PATIENT
  Age: 75 Year
  Sex: Female
  Weight: 71.67 kg

DRUGS (2)
  1. OMEPRAZOLE DELAYED RELEASE [Suspect]
     Indication: PRODUCT USED FOR UNKNOWN INDICATION
     Route: 048
     Dates: start: 20121216
  2. COUMADIN (WARFARIN SODIUM) [Concomitant]

REACTIONS (2)
  - Hypertension [None]
  - Epistaxis [None]
